FAERS Safety Report 5675280-5 (Version None)
Quarter: 2008Q1

REPORT INFORMATION
  Report Type: 
  Country: None (occurrence: None)
  Receive Date: 20080320
  Receipt Date: 20080310
  Transmission Date: 20080703
  Serious: Yes (Hospitalization)
  Sender: FDA-Public Use
  Company Number: SE-ELI_LILLY_AND_COMPANY-SE200803002435

PATIENT
  Sex: Male

DRUGS (4)
  1. CYMBALTA [Suspect]
     Indication: DEPRESSION
     Dosage: UNK, UNKNOWN
     Route: 065
     Dates: start: 20061225, end: 20070220
  2. SERTRALIN [Concomitant]
     Dosage: 100 MG, DAILY (1/D)
     Dates: start: 20070222, end: 20070601
  3. MIRTAZAPINE [Concomitant]
     Dates: start: 20070101
  4. PROPAVAN [Concomitant]
     Dosage: 25 MG, UNK
     Dates: start: 20070101

REACTIONS (1)
  - SCLERODERMA [None]
